FAERS Safety Report 4507702-7 (Version None)
Quarter: 2004Q4

REPORT INFORMATION
  Report Type: 
  Country: None (occurrence: None)
  Receive Date: 20041122
  Receipt Date: 20041110
  Transmission Date: 20050328
  Serious: Yes (Hospitalization)
  Sender: FDA-Public Use
  Company Number: 2004091075

PATIENT
  Sex: Female
  Weight: 131.5431 kg

DRUGS (20)
  1. DRAMAMINE [Suspect]
     Indication: MOTION SICKNESS
     Dosage: 1 TABLET AS NEEDED FOR LONG TRIPS, ORAL
     Route: 048
     Dates: start: 19640101, end: 20031101
  2. ATENOLOL [Concomitant]
  3. DIGOXIN [Concomitant]
  4. WARFARIN SODIUM [Concomitant]
  5. URSODEOXYCHOLIC ACID (URSODEOXYCHOLIC ACID) [Concomitant]
  6. FUROSEMIDE [Concomitant]
  7. SALBUTAMOL (SALBUTAMOL) [Concomitant]
  8. GLIBOMET (METFORMIN HYDROCHLORIDE) [Concomitant]
  9. LEVOTHYROXINE SODIUM [Concomitant]
  10. DICYCLOVERINE (DICYCLOVERINE) [Concomitant]
  11. CALCIPOTRIOL (CALCIPOTRIOL) [Concomitant]
  12. CLOBETASOL (CLOBETASOL) [Concomitant]
  13. TOCOPHEROL CONCENTRATE CAP [Concomitant]
  14. ASCORBIC ACID [Concomitant]
  15. PANCRELIPASE (PANCRELIPASE) [Concomitant]
  16. POTASSIUM (POTASSIUM) [Concomitant]
  17. CYCLOBENZAPRINE HYDROCHLORIDE [Concomitant]
  18. OXYCODONE (OXYCODONE) [Concomitant]
  19. NITROGLYCERIN [Concomitant]
  20. MACROGOL (MACROGOL) [Concomitant]

REACTIONS (9)
  - ATRIAL FIBRILLATION [None]
  - BLOOD PRESSURE INCREASED [None]
  - CEREBROVASCULAR ACCIDENT [None]
  - CHOLECYSTECTOMY [None]
  - ERYTHEMA [None]
  - HEPATITIS [None]
  - PAIN [None]
  - PANCREATITIS [None]
  - PANCREATOLITHIASIS [None]
